FAERS Safety Report 7189364-6 (Version None)
Quarter: 2010Q4

REPORT INFORMATION
  Report Type: 
  Country: None (occurrence: None)
  Receive Date: 20101222
  Receipt Date: 20100830
  Transmission Date: 20110411
  Serious: No
  Sender: FDA-Public Use
  Company Number: US-AMGEN-KDL425251

PATIENT

DRUGS (2)
  1. ENBREL [Suspect]
     Indication: PSORIATIC ARTHROPATHY
     Dosage: 50 MG, QWK
     Route: 058
     Dates: start: 20100621
  2. ENBREL [Suspect]
     Indication: PSORIASIS

REACTIONS (5)
  - INJECTION SITE REACTION [None]
  - LIP BLISTER [None]
  - SUNBURN [None]
  - SYNCOPE [None]
  - WEIGHT LOSS DIET [None]
